FAERS Safety Report 22617516 (Version 2)
Quarter: 2024Q3

REPORT INFORMATION
  Report Type: Spontaneous
  Country: RO (occurrence: RO)
  Receive Date: 20230620
  Receipt Date: 20240712
  Transmission Date: 20241016
  Serious: No
  Sender: PIERRE FABRE MEDICAMENT
  Company Number: RO-PFM-2022-04502

PATIENT
  Age: 5 Year
  Sex: Male

DRUGS (12)
  1. PROPRANOLOL [Suspect]
     Active Substance: PROPRANOLOL HYDROCHLORIDE
     Indication: Hypertension
     Dosage: UNK
     Route: 048
  2. PROPRANOLOL [Suspect]
     Active Substance: PROPRANOLOL HYDROCHLORIDE
     Indication: Off label use
  3. AMPICILLIN [Concomitant]
     Active Substance: AMPICILLIN
     Indication: Product used for unknown indication
     Dosage: UNK
     Route: 065
  4. RIFAXIMIN [Concomitant]
     Active Substance: RIFAXIMIN
     Indication: Product used for unknown indication
     Dosage: UNK
     Route: 065
  5. HYDROCORTISONE HEMISUCCINATE [Concomitant]
     Active Substance: HYDROCORTISONE HEMISUCCINATE
     Indication: Product used for unknown indication
     Dosage: UNK
     Route: 065
  6. ACETYLCYSTEINE [Concomitant]
     Active Substance: ACETYLCYSTEINE
     Indication: Product used for unknown indication
     Dosage: UNK
     Route: 065
  7. ARGININE-SORBITOL [Concomitant]
     Indication: Product used for unknown indication
     Dosage: UNK
     Route: 065
  8. VITAMINS [Concomitant]
     Active Substance: VITAMINS
     Indication: Product used for unknown indication
     Dosage: UNK
     Route: 065
  9. ZINC [Concomitant]
     Active Substance: ZINC
     Indication: Product used for unknown indication
     Dosage: UNK
     Route: 065
  10. LACTULOSE [Concomitant]
     Active Substance: LACTULOSE
     Indication: Product used for unknown indication
     Dosage: UNK
     Route: 065
  11. PROBIOTICS NOS [Concomitant]
     Active Substance: PROBIOTICS NOS
     Indication: Product used for unknown indication
     Dosage: UNK
     Route: 065
  12. SPIRONOLACTONE [Concomitant]
     Active Substance: SPIRONOLACTONE
     Indication: Product used for unknown indication
     Dosage: UNK
     Route: 065

REACTIONS (3)
  - Off label use [Unknown]
  - Product use in unapproved indication [Unknown]
  - Product administered to patient of inappropriate age [Unknown]
